FAERS Safety Report 24705926 (Version 1)
Quarter: 2024Q4

REPORT INFORMATION
  Report Type: Spontaneous
  Country: NL (occurrence: NL)
  Receive Date: 20241206
  Receipt Date: 20241206
  Transmission Date: 20250114
  Serious: Yes (Other)
  Sender: PFIZER
  Company Number: NL-ROCHE-10000142469

PATIENT
  Age: 4 Year
  Sex: Male

DRUGS (2)
  1. RITUXIMAB [Suspect]
     Active Substance: RITUXIMAB
     Indication: Acute lymphocytic leukaemia
     Dosage: 100 MG/M2, MONTHLY (FOR 6 MONTHS)
  2. RITUXIMAB [Suspect]
     Active Substance: RITUXIMAB
     Dosage: 100 MG/M2, EVERY 3 MONTHS

REACTIONS (3)
  - Skin reaction [Unknown]
  - Off label use [Unknown]
  - Drug effective for unapproved indication [Unknown]
